FAERS Safety Report 9208132 (Version 1)
Quarter: 2013Q2

REPORT INFORMATION
  Report Type: Spontaneous
  Country: US (occurrence: US)
  Receive Date: 20130403
  Receipt Date: 20130403
  Transmission Date: 20140414
  Serious: Yes (Hospitalization)
  Sender: FDA-Public Use
  Company Number: GXBR2013US000815

PATIENT
  Sex: Male

DRUGS (1)
  1. METFORMIN [Suspect]
     Dosage: UNK MG, UNK

REACTIONS (3)
  - Pneumatosis intestinalis [Recovered/Resolved]
  - Dehydration [Recovered/Resolved]
  - Diarrhoea [Recovered/Resolved]
